FAERS Safety Report 19599830 (Version 1)
Quarter: 2021Q3

REPORT INFORMATION
  Report Type: Spontaneous
  Country: US (occurrence: US)
  Receive Date: 20210723
  Receipt Date: 20210723
  Transmission Date: 20211014
  Serious: Yes (Hospitalization)
  Sender: FDA-Public Use
  Company Number: None

PATIENT
  Sex: Female

DRUGS (10)
  1. WARFARIN TAB 5MG [Concomitant]
     Dates: start: 20210520
  2. SILDENAFIL. [Suspect]
     Active Substance: SILDENAFIL
     Indication: PULMONARY HYPERTENSION
     Route: 048
     Dates: start: 20210702, end: 20210722
  3. FERROUS SULF ELX 220/5ML [Concomitant]
     Dates: start: 20210323
  4. SILDENAFIL TAB 20MG [Concomitant]
     Active Substance: SILDENAFIL
     Dates: start: 20210528
  5. FUROSEMIDE SOL 10MG/ML [Concomitant]
     Dates: start: 20210612
  6. FUROSEMIDE SOL 8MG/ML [Concomitant]
     Dates: start: 20210612
  7. POT CL MICRO TAB 20MEQ ER [Concomitant]
     Dates: start: 20210625
  8. POT CHLORIDE SOL 10% [Concomitant]
     Dates: start: 20210614
  9. METOLAZONE TAB 2.5MG [Concomitant]
     Dates: start: 20210613
  10. FERROUS SULF DRO 15MG/ML [Concomitant]
     Dates: start: 20210406

REACTIONS (1)
  - Hospice care [None]
